FAERS Safety Report 14715218 (Version 2)
Quarter: 2018Q4

REPORT INFORMATION
  Report Type: Spontaneous
  Country: US (occurrence: US)
  Receive Date: 20180404
  Receipt Date: 20181107
  Transmission Date: 20190204
  Serious: Yes (Hospitalization)
  Sender: FDA-Public Use
  Company Number: US-JNJFOC-20180402865

PATIENT
  Age: 63 Year
  Sex: Female
  Weight: 107.05 kg

DRUGS (1)
  1. INVOKANA [Suspect]
     Active Substance: CANAGLIFLOZIN
     Indication: TYPE 2 DIABETES MELLITUS
     Dosage: VARYING DOSES OF 100 MG AND 300 MG
     Route: 048
     Dates: start: 20141226, end: 20170412

REACTIONS (3)
  - Osteomyelitis [Unknown]
  - Toe amputation [Unknown]
  - Skin ulcer [Unknown]

NARRATIVE: CASE EVENT DATE: 20170323
